FAERS Safety Report 7949192-8 (Version None)
Quarter: 2011Q4

REPORT INFORMATION
  Report Type: 
  Country: None (occurrence: None)
  Receive Date: 20111130
  Receipt Date: 20111123
  Transmission Date: 20120403
  Serious: Yes (Hospitalization, Other)
  Sender: FDA-Public Use
  Company Number: BR-ROCHE-1016831

PATIENT
  Age: 27 Year
  Sex: Female

DRUGS (1)
  1. AVASTIN [Suspect]
     Indication: GASTROINTESTINAL DISORDER
     Route: 042

REACTIONS (2)
  - DRUG INTERACTION [None]
  - CEREBRAL HAEMORRHAGE [None]
